FAERS Safety Report 16270592 (Version 2)
Quarter: 2019Q2

REPORT INFORMATION
  Report Type: Report from Study
  Country: FR (occurrence: FR)
  Receive Date: 20190503
  Receipt Date: 20190520
  Transmission Date: 20190711
  Serious: Yes (Hospitalization)
  Sender: FDA-Public Use
  Company Number: FR-EISAI MEDICAL RESEARCH-EC-2019-055884

PATIENT
  Age: 78 Year
  Sex: Female
  Weight: 61 kg

DRUGS (7)
  1. LENVATINIB [Suspect]
     Active Substance: LENVATINIB
     Dosage: 20 MG OR 14 MG
     Route: 048
     Dates: start: 20190506
  2. LEVOTHYROX [Concomitant]
     Active Substance: LEVOTHYROXINE
  3. LENVATINIB [Suspect]
     Active Substance: LENVATINIB
     Dosage: 24 MG OR 18 MG
     Route: 048
     Dates: start: 20190323, end: 20190429
  4. LENVATINIB [Suspect]
     Active Substance: LENVATINIB
     Indication: THYROID CANCER
     Dosage: 24 MG OR 18 MG
     Route: 048
     Dates: start: 20180918, end: 20190127
  5. IRBESARTAN. [Concomitant]
     Active Substance: IRBESARTAN
  6. LENVATINIB [Suspect]
     Active Substance: LENVATINIB
     Dosage: 24 MG OR 18 MG
     Route: 048
     Dates: start: 20190204, end: 20190313
  7. AMLOR [Concomitant]
     Active Substance: AMLODIPINE BESYLATE

REACTIONS (1)
  - Hypertension [Recovered/Resolved]

NARRATIVE: CASE EVENT DATE: 20190429
